FAERS Safety Report 17929494 (Version 1)
Quarter: 2020Q2

REPORT INFORMATION
  Report Type: Spontaneous
  Country: US (occurrence: US)
  Receive Date: 20200623
  Receipt Date: 20200623
  Transmission Date: 20200714
  Serious: No
  Sender: FDA-Public Use
  Company Number: US-ALLERGAN-1939265US

PATIENT
  Age: 49 Year
  Sex: Male

DRUGS (4)
  1. KYBELLA [Suspect]
     Active Substance: DEOXYCHOLIC ACID
     Dosage: UNK, SINGLE (3 VIALS)
     Dates: start: 20170821, end: 20170821
  2. KYBELLA [Suspect]
     Active Substance: DEOXYCHOLIC ACID
     Dosage: UNK, SINGLE (3 VIALS)
     Dates: start: 20171002, end: 20171002
  3. KYBELLA [Suspect]
     Active Substance: DEOXYCHOLIC ACID
     Indication: SKIN WRINKLING
     Dosage: UNK, SINGLE (2 VIALS)
     Dates: start: 20180110, end: 20180110
  4. KYBELLA [Suspect]
     Active Substance: DEOXYCHOLIC ACID
     Dosage: UNK, SINGLE (4 VIALS)
     Dates: start: 20170712, end: 20170712

REACTIONS (1)
  - Drug ineffective [Unknown]
